FAERS Safety Report 19052494 (Version 3)
Quarter: 2021Q2

REPORT INFORMATION
  Report Type: Report from Study
  Country: AU (occurrence: AU)
  Receive Date: 20210324
  Receipt Date: 20210528
  Transmission Date: 20210717
  Serious: Yes (Hospitalization, Other)
  Sender: FDA-Public Use
  Company Number: AU-BRISTOL-MYERS SQUIBB COMPANY-BMS-2021-025728

PATIENT
  Age: 48 Year
  Sex: Female
  Weight: 51 kg

DRUGS (8)
  1. IPILIMUMAB [Suspect]
     Active Substance: IPILIMUMAB
     Indication: MALIGNANT MELANOMA
     Dosage: 153 MILLIGRAM
     Route: 065
     Dates: start: 20210127, end: 20210127
  2. IPILIMUMAB [Suspect]
     Active Substance: IPILIMUMAB
     Dosage: 157.5 MILLIGRAM
     Route: 065
     Dates: start: 20210215, end: 20210215
  3. NIVOLUMAB [Suspect]
     Active Substance: NIVOLUMAB
     Indication: MALIGNANT MELANOMA
     Dosage: 51 MILLIGRAM
     Route: 065
     Dates: start: 20210127, end: 20210127
  4. PREDNISONE. [Concomitant]
     Active Substance: PREDNISONE
     Indication: PRODUCT USED FOR UNKNOWN INDICATION
     Dosage: 50 MILLIGRAM
     Route: 048
     Dates: start: 20210301, end: 20210308
  5. PANTOPRAZOLE [Concomitant]
     Active Substance: PANTOPRAZOLE
     Indication: PRODUCT USED FOR UNKNOWN INDICATION
     Dosage: 20 MILLIGRAM
     Route: 048
     Dates: start: 20210301
  6. METHYLPREDNISOLONE. [Concomitant]
     Active Substance: METHYLPREDNISOLONE
     Indication: PRODUCT USED FOR UNKNOWN INDICATION
     Dosage: 1 GRAM
     Route: 042
     Dates: start: 20210315, end: 20210317
  7. PREDNISONE. [Concomitant]
     Active Substance: PREDNISONE
     Dosage: 37.5 MILLIGRAM
     Route: 048
     Dates: start: 20210309, end: 20210314
  8. NIVOLUMAB [Suspect]
     Active Substance: NIVOLUMAB
     Dosage: 52.5 MILLIGRAM
     Route: 065
     Dates: start: 20210215, end: 20210215

REACTIONS (2)
  - Colitis [Recovering/Resolving]
  - Diarrhoea [Recovering/Resolving]

NARRATIVE: CASE EVENT DATE: 20210315
